FAERS Safety Report 5269015-8 (Version None)
Quarter: 2007Q1

REPORT INFORMATION
  Report Type: 
  Country: None (occurrence: None)
  Receive Date: 20061212
  Receipt Date: 20050208
  Transmission Date: 20070707
  Serious: Yes (Other)
  Sender: FDA-Public Use
  Company Number: 2004UW25133

PATIENT
  Age: 11 Year
  Sex: Male

DRUGS (7)
  1. PULMICORT [Suspect]
     Indication: ASTHMA
     Dosage: 1 PUFF BID IH
     Route: 055
     Dates: start: 20041208
  2. PULMICORT [Suspect]
     Indication: ASTHMA
     Dosage: 1 PUFF QD IH
     Route: 055
     Dates: start: 20041203, end: 20041207
  3. PULMICORT [Suspect]
     Indication: ASTHMA
     Dosage: 1 PUFF QD IH
     Route: 055
  4. ALLEGRA [Concomitant]
  5. LITHIUIM [Concomitant]
  6. WELLBUTRIN [Concomitant]
  7. NOSE SPRAY [Concomitant]

REACTIONS (2)
  - FLUSHING [None]
  - HYPERHIDROSIS [None]
